FAERS Safety Report 8022775-5 (Version None)
Quarter: 2012Q1

REPORT INFORMATION
  Report Type: 
  Country: None (occurrence: None)
  Receive Date: 20120104
  Receipt Date: 20120103
  Transmission Date: 20120608
  Serious: Yes (Hospitalization)
  Sender: FDA-Public Use
  Company Number: DE-MERCK-1111DEU00135

PATIENT
  Age: 53 Year
  Sex: Female
  Weight: 92 kg

DRUGS (3)
  1. NEBIVOLOL [Concomitant]
     Indication: HYPERTENSION
     Route: 048
  2. GLYBURIDE [Concomitant]
     Indication: HISTAMINE INTOLERANCE
     Route: 048
  3. JANUVIA [Suspect]
     Indication: DIABETES MELLITUS
     Route: 048
     Dates: start: 20110901, end: 20110901

REACTIONS (3)
  - HYPERTENSION [None]
  - DRUG INTOLERANCE [None]
  - ANAPHYLACTOID REACTION [None]
